FAERS Safety Report 18522201 (Version 1)
Quarter: 2020Q4

REPORT INFORMATION
  Report Type: Spontaneous
  Country: US (occurrence: US)
  Receive Date: 20201119
  Receipt Date: 20201119
  Transmission Date: 20210114
  Serious: No
  Sender: FDA-Public Use
  Company Number: US-HORIZON-2020HZN01227

PATIENT
  Age: 59 Year
  Sex: Female
  Weight: 79.4 kg

DRUGS (19)
  1. TESTOSTERONE. [Concomitant]
     Active Substance: TESTOSTERONE
  2. LISINOPRIL. [Concomitant]
     Active Substance: LISINOPRIL
  3. CYCLOBENZAPRINE HYDROCORTISONE [Concomitant]
  4. EUTHYROX [Concomitant]
     Active Substance: LEVOTHYROXINE SODIUM
  5. TRAMADOL HYDROCHLORIDE. [Concomitant]
     Active Substance: TRAMADOL HYDROCHLORIDE
  6. CELECOXIB. [Concomitant]
     Active Substance: CELECOXIB
  7. METOCLOPRAMIDE HYDROCHLORIDE. [Concomitant]
     Active Substance: METOCLOPRAMIDE HYDROCHLORIDE
  8. METFORMIN EXTENDED RELEASE GASTRIC [Concomitant]
  9. BUPROPION HYDROCHLORIDE. [Concomitant]
     Active Substance: BUPROPION HYDROCHLORIDE
  10. TEPEZZA [Suspect]
     Active Substance: TEPROTUMUMAB-TRBW
     Indication: TOXIC GOITRE
     Route: 050
     Dates: start: 20201015
  11. ESZOPICLONE. [Concomitant]
     Active Substance: ESZOPICLONE
  12. BUTALBITAL-CAFFEINE-ACETAMINOPHEN-CODEIN [Concomitant]
  13. BUSPIRONE HYDROCHLORIDE. [Concomitant]
     Active Substance: BUSPIRONE HYDROCHLORIDE
  14. OXYCODONE HYDROCHLORIDE. [Concomitant]
     Active Substance: OXYCODONE HYDROCHLORIDE
  15. DEPO-ESTRADIOL [Concomitant]
     Active Substance: ESTRADIOL CYPIONATE
  16. BACLOFEN. [Concomitant]
     Active Substance: BACLOFEN
  17. OMEPRAZOLE. [Concomitant]
     Active Substance: OMEPRAZOLE
  18. NIACIN. [Concomitant]
     Active Substance: NIACIN
  19. TIZANIDINE HYDROCHLORIDE. [Concomitant]
     Active Substance: TIZANIDINE HYDROCHLORIDE

REACTIONS (1)
  - Haemorrhage [Unknown]
